FAERS Safety Report 9393486 (Version 1)
Quarter: 2013Q3

REPORT INFORMATION
  Report Type: Spontaneous
  Country: DE (occurrence: None)
  Receive Date: 20130708
  Receipt Date: 20130708
  Transmission Date: 20140515
  Serious: Yes (Hospitalization)
  Sender: FDA-Public Use
  Company Number: DE-023383

PATIENT
  Age: 69 Year
  Sex: Female

DRUGS (15)
  1. CHLORAMBUCIL [Suspect]
     Indication: CHRONIC LYMPHOCYTIC LEUKAEMIA
     Dosage: DAY 1, DAY 15 OF 28 DAY CYCLE (50 MILLIGRAM, 2 WEEKS), ORAL
     Route: 048
     Dates: start: 20101207
  2. L-THYROXIN [Concomitant]
  3. LOSARTAN [Concomitant]
  4. BISOPROLOL [Concomitant]
  5. PANTOPRAZOLE (PANTOPRAZOLE) [Concomitant]
  6. PLAVIX [Concomitant]
  7. ASS (UNKNOWN) [Concomitant]
  8. MAGNESIUM CHLORIDE [Concomitant]
  9. SPIRO COMP [Concomitant]
  10. ALLOPURINOL [Concomitant]
  11. AMPHO-MORONAL [Concomitant]
  12. SIMVASTATIN [Concomitant]
  13. ESIDRIX [Concomitant]
  14. FUROSEMIDE (FUROSEMIDE) [Concomitant]
  15. ASPIRIN [Concomitant]

REACTIONS (3)
  - Febrile neutropenia [None]
  - Tachyarrhythmia [None]
  - Liver abscess [None]
